FAERS Safety Report 25776592 (Version 1)
Quarter: 2025Q3

REPORT INFORMATION
  Report Type: Spontaneous
  Country: US (occurrence: US)
  Receive Date: 20250909
  Receipt Date: 20250909
  Transmission Date: 20251020
  Serious: No
  Sender: DOMPE FARMACEUTICI
  Company Number: US-FARMAPROD-202503-0797

PATIENT
  Sex: Female

DRUGS (11)
  1. OXERVATE [Suspect]
     Active Substance: CENEGERMIN-BKBJ
     Indication: Product used for unknown indication
     Route: 047
     Dates: start: 20250309
  2. MONTELUKAST SODIUM [Concomitant]
     Active Substance: MONTELUKAST SODIUM
  3. ABCID [OMEPRAZOLE] [Concomitant]
  4. BUPIUM XL [Concomitant]
  5. XIIDRA [Concomitant]
     Active Substance: LIFITEGRAST
  6. FAMED [Concomitant]
  7. ARBITEL MT [Concomitant]
  8. ADIVAST [Concomitant]
  9. ACICLOFAR [Concomitant]
  10. ALOTROPAL [Concomitant]
  11. PREMARIN [Concomitant]
     Active Substance: ESTROGENS, CONJUGATED

REACTIONS (2)
  - Wrong technique in product usage process [Unknown]
  - Nasopharyngitis [None]
